FAERS Safety Report 8822129 (Version 2)
Quarter: 2012Q4

REPORT INFORMATION
  Report Type: 
  Country: ZA (occurrence: ZA)
  Receive Date: 20121003
  Receipt Date: 20121024
  Transmission Date: 20130627
  Serious: Yes (Hospitalization, Other)
  Sender: FDA-Public Use
  Company Number: ZA-JNJFOC-20120905504

PATIENT
  Age: 35 Year
  Sex: Male
  Weight: 75 kg

DRUGS (13)
  1. REVELLEX [Suspect]
     Indication: RHEUMATOID ARTHRITIS
     Route: 042
     Dates: start: 20120528
  2. REVELLEX [Suspect]
     Indication: RHEUMATOID ARTHRITIS
     Dosage: 250 mg in 250 ml normal saline over 2 hours
     Route: 042
     Dates: start: 20120119
  3. REVELLEX [Suspect]
     Indication: RHEUMATOID ARTHRITIS
     Route: 042
     Dates: start: 20120724, end: 20120724
  4. PREDNISONE [Concomitant]
     Indication: RHEUMATOID ARTHRITIS
     Route: 048
  5. PREDNISONE [Concomitant]
     Indication: RHEUMATOID ARTHRITIS
     Route: 048
     Dates: start: 19980601
  6. METHOTREXATE [Concomitant]
     Indication: RHEUMATOID ARTHRITIS
     Route: 048
  7. METHOTREXATE [Concomitant]
     Indication: RHEUMATOID ARTHRITIS
     Route: 048
  8. NIVAQUINE [Concomitant]
     Indication: RHEUMATOID ARTHRITIS
     Dosage: from monday to friday
     Route: 048
  9. NIVAQUINE [Concomitant]
     Indication: RHEUMATOID ARTHRITIS
     Dosage: 250 mg daily 5 days a week
     Route: 048
  10. AZAPRESS [Concomitant]
     Indication: RHEUMATOID ARTHRITIS
     Route: 048
  11. AZAPRESS [Concomitant]
     Indication: RHEUMATOID ARTHRITIS
     Route: 048
  12. TRAMACET [Concomitant]
     Indication: PAIN
     Route: 048
  13. FOLIC ACID [Concomitant]
     Indication: RHEUMATOID ARTHRITIS
     Route: 048

REACTIONS (3)
  - Pericardial effusion [Recovered/Resolved]
  - Pericarditis [Recovering/Resolving]
  - Lupus-like syndrome [Recovering/Resolving]
